FAERS Safety Report 8316921 (Version 2)
Quarter: 2012Q4

REPORT INFORMATION
  Report Type: Report from Study
  Country: ES (occurrence: ES)
  Receive Date: 20111230
  Receipt Date: 20121026
  Transmission Date: 20130627
  Serious: Yes (Hospitalization)
  Sender: FDA-Public Use
  Company Number: ES-ABBOTT-11P-144-0885966-00

PATIENT
  Age: 36 Year
  Sex: Female
  Weight: 62 kg

DRUGS (3)
  1. HUMIRA [Suspect]
     Indication: CROHN^S DISEASE
     Route: 058
     Dates: start: 20090618, end: 20110220
  2. HUMIRA [Suspect]
     Dosage: week 2
  3. HUMIRA [Suspect]
     Route: 058

REACTIONS (1)
  - Viral infection [Recovered/Resolved]
